FAERS Safety Report 15807401 (Version 5)
Quarter: 2021Q3

REPORT INFORMATION
  Report Type: Spontaneous
  Country: US (occurrence: US)
  Receive Date: 20190110
  Receipt Date: 20210806
  Transmission Date: 20211014
  Serious: Yes (Other)
  Sender: FDA-Public Use
  Company Number: US-PFIZER INC-2019011925

PATIENT
  Age: 81 Year
  Sex: Female
  Weight: 54.43 kg

DRUGS (1)
  1. XELJANZ XR [Suspect]
     Active Substance: TOFACITINIB CITRATE
     Indication: RHEUMATOID ARTHRITIS
     Dosage: 11 MG

REACTIONS (6)
  - Overdose [Unknown]
  - Pain in extremity [Unknown]
  - Arthropathy [Unknown]
  - Drug dependence [Unknown]
  - Neuropathy peripheral [Unknown]
  - Fall [Unknown]
